FAERS Safety Report 9863484 (Version 1)
Quarter: 2014Q1

REPORT INFORMATION
  Report Type: Spontaneous
  Country: FR (occurrence: FR)
  Receive Date: 20140203
  Receipt Date: 20140203
  Transmission Date: 20141002
  Serious: Yes (Other)
  Sender: FDA-Public Use
  Company Number: FR-ASTRAZENECA-2014SE05484

PATIENT
  Sex: Female

DRUGS (3)
  1. XEROQUEL [Suspect]
     Route: 048
  2. XEROQUEL [Suspect]
     Route: 048
  3. DEPAKOTE [Concomitant]
     Route: 048

REACTIONS (1)
  - Blood triglycerides increased [Recovering/Resolving]
